FAERS Safety Report 10553561 (Version 1)
Quarter: 2014Q4

REPORT INFORMATION
  Report Type: Spontaneous
  Country: RU (occurrence: None)
  Receive Date: 20141028
  Receipt Date: 20141028
  Transmission Date: 20150529
  Serious: Yes (Other)
  Sender: FDA-Public Use
  Company Number: B0996868A

PATIENT
  Sex: Female

DRUGS (8)
  1. EPIVIR [Suspect]
     Active Substance: LAMIVUDINE
     Indication: HIV INFECTION
     Dates: start: 201404
  2. VIDEX [Suspect]
     Active Substance: DIDANOSINE
     Indication: HIV INFECTION
     Dates: start: 201404
  3. VIRAMUNE [Suspect]
     Active Substance: NEVIRAPINE
     Indication: HIV INFECTION
     Dates: start: 201404
  4. AVELOX [Suspect]
     Active Substance: MOXIFLOXACIN HYDROCHLORIDE
     Indication: TUBERCULOSIS
  5. CYCLOSERINE. [Suspect]
     Active Substance: CYCLOSERINE
     Indication: TUBERCULOSIS
  6. CAPREOMYCIN [Suspect]
     Active Substance: CAPREOMYCIN
     Indication: TUBERCULOSIS
  7. PYRAZINAMIDE (PYRAZINAMIDE) [Suspect]
     Active Substance: PYRAZINAMIDE
     Indication: TUBERCULOSIS
  8. PASK [Suspect]
     Active Substance: AMINOSALICYLATE SODIUM
     Indication: TUBERCULOSIS

REACTIONS (10)
  - Loss of consciousness [None]
  - Irritability [None]
  - Muscle contractions involuntary [None]
  - Ill-defined disorder [None]
  - Crying [None]
  - Tinnitus [None]
  - Tremor [None]
  - Polymenorrhoea [None]
  - Pyrexia [None]
  - Nasopharyngitis [None]

NARRATIVE: CASE EVENT DATE: 201404
